FAERS Safety Report 19793910 (Version 1)
Quarter: 2021Q3

REPORT INFORMATION
  Report Type: Spontaneous
  Country: ES (occurrence: ES)
  Receive Date: 20210907
  Receipt Date: 20210907
  Transmission Date: 20211014
  Serious: Yes (Hospitalization, Other)
  Sender: FDA-Public Use
  Company Number: ES-CPL-002533

PATIENT
  Age: 2 Year
  Sex: Male
  Weight: 15 kg

DRUGS (3)
  1. TIZANIDINE. [Suspect]
     Active Substance: TIZANIDINE
     Indication: MUSCLE SPASTICITY
     Dosage: 0.15 MG/KG/DAY, 2 MG/DAY, FOR 1 YEAR?INCREASED TO 1.6 MG/KG/DAY (4 MG EVERY 4 HOURS)
     Route: 048
  2. CLONAZEPAM. [Concomitant]
     Active Substance: CLONAZEPAM
     Dosage: 0.3?0.4 MG TWICE DAILY
     Route: 048
  3. MONTELUKAST [Concomitant]
     Active Substance: MONTELUKAST SODIUM
     Indication: WHEEZING
     Route: 048

REACTIONS (4)
  - Renal failure [Recovered/Resolved]
  - Cardiac failure [Recovered/Resolved]
  - Hepatic failure [Recovered/Resolved]
  - Overdose [Unknown]
